FAERS Safety Report 6609839-5 (Version None)
Quarter: 2010Q1

REPORT INFORMATION
  Report Type: 
  Country: None (occurrence: None)
  Receive Date: 20100302
  Receipt Date: 20100218
  Transmission Date: 20100710
  Serious: Yes (Other)
  Sender: FDA-Public Use
  Company Number: PHHY2010GB10554

PATIENT

DRUGS (1)
  1. EXJADE [Suspect]

REACTIONS (1)
  - HEPATIC NEOPLASM MALIGNANT [None]
